FAERS Safety Report 9030546 (Version 2)
Quarter: 2013Q1

REPORT INFORMATION
  Report Type: Spontaneous
  Country: US (occurrence: US)
  Receive Date: 20130122
  Receipt Date: 20130227
  Transmission Date: 20140127
  Serious: Yes (Congenital Anomaly, Other)
  Sender: FDA-Public Use
  Company Number: US-PFIZER INC-2012059914

PATIENT
  Sex: Female
  Weight: 3 kg

DRUGS (9)
  1. ZOLOFT [Suspect]
     Indication: ANXIETY
     Dosage: 50 MG DAILY
     Route: 064
     Dates: start: 20060202
  2. ZOLOFT [Suspect]
     Indication: DEPRESSION
     Dosage: 75 UNK, 4X/DAY
     Route: 064
     Dates: start: 20060403
  3. ZOLOFT [Suspect]
     Indication: AFFECTIVE DISORDER
  4. ZITHROMAX [Concomitant]
     Dosage: UNK
     Route: 064
     Dates: start: 20060227
  5. TYLENOL WITH CODEINE [Concomitant]
     Indication: BACK PAIN
     Dosage: UNK
     Route: 064
     Dates: start: 20060618
  6. CLINDAMYCIN [Concomitant]
     Dosage: 1 % SOLUTION
     Route: 064
     Dates: start: 20060705
  7. LEXAPRO [Concomitant]
     Dosage: 20 MG, UNK
     Route: 064
     Dates: start: 20060711
  8. TYLENOL [Concomitant]
     Dosage: UNK
     Route: 064
  9. PRENATAL VITAMINS [Concomitant]
     Dosage: UNK
     Route: 064

REACTIONS (6)
  - Maternal exposure timing unspecified [Unknown]
  - Fallot^s tetralogy [Unknown]
  - Ventricular septal defect [Unknown]
  - Pulmonary artery stenosis congenital [Unknown]
  - Atrial septal defect [Unknown]
  - Premature baby [Unknown]
